FAERS Safety Report 7825966-9 (Version None)
Quarter: 2011Q4

REPORT INFORMATION
  Report Type: 
  Country: None (occurrence: None)
  Receive Date: 20111019
  Receipt Date: 20111010
  Transmission Date: 20120403
  Serious: Yes (Other)
  Sender: FDA-Public Use
  Company Number: BG-ASTRAZENECA-2011SE54607

PATIENT
  Age: 4 Year
  Sex: Female

DRUGS (1)
  1. MEROPENEM [Suspect]
     Indication: INFECTION
     Route: 042

REACTIONS (2)
  - KAWASAKI'S DISEASE [None]
  - THROMBOCYTOSIS [None]
